FAERS Safety Report 4508005-7 (Version None)
Quarter: 2004Q4

REPORT INFORMATION
  Report Type: 
  Country: None (occurrence: None)
  Receive Date: 20041122
  Receipt Date: 20041122
  Transmission Date: 20050328
  Serious: No
  Sender: FDA-Public Use
  Company Number: None

PATIENT
  Age: 73 Year
  Sex: Male
  Weight: 125 kg

DRUGS (1)
  1. OXYBUTYNIN 5 MG (RLIVER) [Suspect]
     Dosage: 5 MG TID PO
     Route: 048
     Dates: start: 20040924, end: 20041114

REACTIONS (2)
  - ABDOMINAL PAIN UPPER [None]
  - LOOSE STOOLS [None]
